FAERS Safety Report 12592774 (Version 5)
Quarter: 2016Q4

REPORT INFORMATION
  Report Type: Report from Study
  Country: CA (occurrence: CA)
  Receive Date: 20160726
  Receipt Date: 20161209
  Transmission Date: 20170207
  Serious: Yes (Other)
  Sender: FDA-Public Use
  Company Number: PHHY2015CA144554

PATIENT
  Sex: Female

DRUGS (3)
  1. TAFINLAR [Suspect]
     Active Substance: DABRAFENIB MESYLATE
     Dosage: UNK
     Route: 048
  2. MEKINIST [Suspect]
     Active Substance: TRAMETINIB DIMETHYL SULFOXIDE
     Indication: METASTATIC MALIGNANT MELANOMA
     Dosage: 2 MG, QD
     Route: 048
     Dates: start: 20151015, end: 20160803
  3. TAFINLAR [Suspect]
     Active Substance: DABRAFENIB MESYLATE
     Indication: METASTATIC MALIGNANT MELANOMA
     Dosage: 300 MG, QD
     Route: 048
     Dates: start: 20151015, end: 20160803

REACTIONS (12)
  - Hyperhidrosis [Unknown]
  - Arthritis [Unknown]
  - Seizure [Unknown]
  - Pain in extremity [Unknown]
  - Uveitis [Unknown]
  - Arthralgia [Unknown]
  - Chills [Unknown]
  - Nausea [Unknown]
  - Feeling cold [Unknown]
  - Gout [Unknown]
  - Dizziness [Unknown]
  - Hot flush [Unknown]
